FAERS Safety Report 13269713 (Version 1)
Quarter: 2017Q1

REPORT INFORMATION
  Report Type: Spontaneous
  Country: US (occurrence: US)
  Receive Date: 20170224
  Receipt Date: 20170224
  Transmission Date: 20170428
  Serious: Yes (Hospitalization, Other)
  Sender: FDA-Public Use
  Company Number: US-ASTRAZENECA-2017SE19783

PATIENT
  Age: 67 Year
  Sex: Female
  Weight: 77.5 kg

DRUGS (3)
  1. PREGABALIN. [Concomitant]
     Active Substance: PREGABALIN
     Dates: start: 201601
  2. LEVOTHYROXINE. [Concomitant]
     Active Substance: LEVOTHYROXINE
     Dates: start: 2014
  3. OLAPARIB [Suspect]
     Active Substance: OLAPARIB
     Indication: NEOPLASM MALIGNANT
     Route: 048

REACTIONS (3)
  - Myelodysplastic syndrome [Recovering/Resolving]
  - Anaemia [Recovering/Resolving]
  - Hydronephrosis [Unknown]

NARRATIVE: CASE EVENT DATE: 20170113
